FAERS Safety Report 7727324-4 (Version None)
Quarter: 2011Q3

REPORT INFORMATION
  Report Type: 
  Country: None (occurrence: None)
  Receive Date: 20110902
  Receipt Date: 20110815
  Transmission Date: 20111222
  Serious: Yes (Other)
  Sender: FDA-Public Use
  Company Number: BR-BAYER-2011-073022

PATIENT
  Sex: Female
  Weight: 3.49 kg

DRUGS (1)
  1. YASMIN [Suspect]
     Dosage: UNK
     Route: 064
     Dates: start: 20100101, end: 20110303

REACTIONS (1)
  - JAUNDICE NEONATAL [None]
